FAERS Safety Report 24609692 (Version 1)
Quarter: 2024Q4

REPORT INFORMATION
  Report Type: Spontaneous
  Country: US (occurrence: US)
  Receive Date: 20241112
  Receipt Date: 20241112
  Transmission Date: 20250115
  Serious: No
  Sender: SANOFI AVENTIS
  Company Number: US-SA-2024SA325491

PATIENT
  Age: 26 Year

DRUGS (2)
  1. ELITEK [Suspect]
     Active Substance: RASBURICASE
     Indication: Blood uric acid increased
     Dosage: 3 MG, QD
     Route: 042
  2. ELITEK [Suspect]
     Active Substance: RASBURICASE
     Dosage: EVERY 3 DAYS
     Route: 042

REACTIONS (1)
  - Off label use [Unknown]
